FAERS Safety Report 18351741 (Version 2)
Quarter: 2020Q4

REPORT INFORMATION
  Report Type: Spontaneous
  Country: DE (occurrence: DE)
  Receive Date: 20201006
  Receipt Date: 20201119
  Transmission Date: 20210114
  Serious: Yes (Other)
  Sender: FDA-Public Use
  Company Number: DE-DSJP-DSE-2020-128965

PATIENT
  Age: 84 Year
  Sex: Male

DRUGS (6)
  1. DUODART [Suspect]
     Active Substance: DUTASTERIDE\TAMSULOSIN
     Indication: HYPERTENSION
     Dosage: 1 DF, QD
     Dates: start: 201904
  2. INDAPAMIDE. [Suspect]
     Active Substance: INDAPAMIDE
     Indication: HYPERTENSION
     Dosage: UNK
  3. PRAVASTATIN SODIUM. [Concomitant]
     Active Substance: PRAVASTATIN SODIUM
     Indication: PRODUCT USED FOR UNKNOWN INDICATION
     Dosage: UNK
  4. VOTUM [OLMESARTAN/MEDOXOMIL] [Suspect]
     Active Substance: OLMESARTAN MEDOXOMIL
     Indication: HYPERTENSION
     Dosage: UNK
  5. AAS [Concomitant]
     Active Substance: ASPIRIN
     Indication: PRODUCT USED FOR UNKNOWN INDICATION
     Dosage: UNK
  6. ALLOPURINOL. [Concomitant]
     Active Substance: ALLOPURINOL
     Indication: PRODUCT USED FOR UNKNOWN INDICATION
     Dosage: UNK

REACTIONS (11)
  - Syncope [Recovered/Resolved]
  - Visual impairment [Unknown]
  - Haemoglobin decreased [Unknown]
  - Blood pressure decreased [Recovered/Resolved]
  - Concussion [Recovered/Resolved]
  - Fall [Recovered/Resolved]
  - Cerebrovascular insufficiency [Recovered/Resolved]
  - Contraindicated product administered [Not Recovered/Not Resolved]
  - Blood blister [Recovered/Resolved]
  - Asthenia [Unknown]
  - Balance disorder [Unknown]
